FAERS Safety Report 6454809-3 (Version None)
Quarter: 2009Q4

REPORT INFORMATION
  Report Type: 
  Country: None (occurrence: None)
  Receive Date: 20091124
  Receipt Date: 20091110
  Transmission Date: 20100525
  Serious: Yes (Other)
  Sender: FDA-Public Use
  Company Number: ES-GENENTECH-293861

PATIENT
  Sex: Male

DRUGS (14)
  1. MABTHERA [Suspect]
     Indication: RHEUMATOID ARTHRITIS
     Dosage: UNK
     Route: 042
  2. SERC [Concomitant]
     Indication: DIZZINESS
  3. OMEPRAZOLE [Concomitant]
     Indication: DRUG USE FOR UNKNOWN INDICATION
  4. ZOCOR [Concomitant]
     Indication: BLOOD CHOLESTEROL ABNORMAL
  5. ADIRO [Concomitant]
     Indication: DRUG USE FOR UNKNOWN INDICATION
  6. IDEOS [Concomitant]
     Indication: DRUG USE FOR UNKNOWN INDICATION
  7. COLECALCIFEROL [Concomitant]
  8. URBASON [Concomitant]
  9. METHYLPREDNISOLONE [Concomitant]
     Indication: RHEUMATOID ARTHRITIS
  10. VOLTAREN [Concomitant]
     Indication: RHEUMATOID ARTHRITIS
  11. RENITEC [Concomitant]
     Indication: HYPERTENSION
  12. LORAZEPAM [Concomitant]
     Indication: DRUG USE FOR UNKNOWN INDICATION
  13. TRIPTIZOL [Concomitant]
     Indication: DRUG USE FOR UNKNOWN INDICATION
  14. SYMBICORT [Concomitant]
     Indication: BRONCHITIS CHRONIC

REACTIONS (2)
  - DEMYELINATION [None]
  - SPINAL COMPRESSION FRACTURE [None]
